FAERS Safety Report 7968354-7 (Version None)
Quarter: 2011Q4

REPORT INFORMATION
  Report Type: 
  Country: None (occurrence: None)
  Receive Date: 20111209
  Receipt Date: 20111128
  Transmission Date: 20120403
  Serious: Yes (Hospitalization, Other)
  Sender: FDA-Public Use
  Company Number: US-BAYER-2011-027517

PATIENT
  Age: 48 Year
  Sex: Female

DRUGS (4)
  1. VITAMIN E [Concomitant]
  2. EPIDURAL INJECTIONS [Concomitant]
  3. YAZ [Suspect]
     Indication: PREMENSTRUAL SYNDROME
     Dosage: UNK
     Route: 048
     Dates: start: 20060901, end: 20070201
  4. ZOLOFT [Concomitant]

REACTIONS (9)
  - ANXIETY [None]
  - CHOLECYSTECTOMY [None]
  - MENTAL DISORDER [None]
  - INJURY [None]
  - PAIN [None]
  - EMOTIONAL DISTRESS [None]
  - PULMONARY EMBOLISM [None]
  - GENERAL PHYSICAL HEALTH DETERIORATION [None]
  - ANHEDONIA [None]
